FAERS Safety Report 6150084-8 (Version None)
Quarter: 2009Q2

REPORT INFORMATION
  Report Type: 
  Country: None (occurrence: None)
  Receive Date: 20090407
  Receipt Date: 20090407
  Transmission Date: 20091009
  Serious: No
  Sender: FDA-Public Use
  Company Number: None

PATIENT
  Sex: Female
  Weight: 83 kg

DRUGS (2)
  1. CARBOPLATIN [Suspect]
     Dosage: 631 MG
     Dates: end: 20090310
  2. TAXOL [Suspect]
     Dosage: 320 MG
     Dates: end: 20090310

REACTIONS (1)
  - NEUTROPENIA [None]
